FAERS Safety Report 6768144-7 (Version None)
Quarter: 2010Q2

REPORT INFORMATION
  Report Type: 
  Country: None (occurrence: None)
  Receive Date: 20100614
  Receipt Date: 20100607
  Transmission Date: 20101027
  Serious: Yes (Hospitalization, Other)
  Sender: FDA-Public Use
  Company Number: US-PFIZER INC-2010071686

PATIENT
  Sex: Female
  Weight: 65.77 kg

DRUGS (2)
  1. OGEN [Suspect]
     Indication: HORMONE REPLACEMENT THERAPY
     Dosage: 1.25 MG, 1X/DAY
     Route: 048
     Dates: start: 19900101, end: 20080301
  2. OGEN [Suspect]
     Dosage: 1.25 MG, 1X/DAY
     Dates: start: 20080401, end: 20100530

REACTIONS (2)
  - AUTOIMMUNE THYROIDITIS [None]
  - OVARIAN CYST [None]
